FAERS Safety Report 14658940 (Version 1)
Quarter: 2018Q1

REPORT INFORMATION
  Report Type: Spontaneous
  Country: CA (occurrence: CA)
  Receive Date: 20180320
  Receipt Date: 20180320
  Transmission Date: 20180509
  Serious: Yes (Other)
  Sender: FDA-Public Use
  Company Number: CA-REGENERON PHARMACEUTICALS, INC.-2018-18779

PATIENT

DRUGS (2)
  1. EYLEA [Suspect]
     Active Substance: AFLIBERCEPT
     Indication: PRODUCT USED FOR UNKNOWN INDICATION
     Route: 065
  2. LUCENTIS [Suspect]
     Active Substance: RANIBIZUMAB
     Indication: PRODUCT USED FOR UNKNOWN INDICATION
     Dosage: TOTAL DOSES AND LAST DOSE PRIOR EVENTS NOT PROVIDED
     Route: 065

REACTIONS (5)
  - Fear [Unknown]
  - Vision blurred [Unknown]
  - Macular degeneration [Unknown]
  - Visual impairment [Unknown]
  - Eye discharge [Unknown]
